FAERS Safety Report 7633237-9 (Version None)
Quarter: 2011Q3

REPORT INFORMATION
  Report Type: 
  Country: None (occurrence: None)
  Receive Date: 20110725
  Receipt Date: 20110719
  Transmission Date: 20111222
  Serious: Yes (Other)
  Sender: FDA-Public Use
  Company Number: ES-ROCHE-790100

PATIENT
  Age: 67 Year
  Sex: Female

DRUGS (6)
  1. PANTOPRAZOLE [Concomitant]
     Indication: PROPHYLAXIS AGAINST GASTROINTESTINAL ULCER
     Route: 042
     Dates: start: 20110216
  2. METHYLPREDNISOLONE [Concomitant]
     Indication: BRONCHOSPASM
     Route: 042
     Dates: start: 20110216, end: 20110221
  3. ENOXAPARIN SODIUM [Concomitant]
     Indication: THROMBOSIS PROPHYLAXIS
     Route: 058
     Dates: start: 20110216
  4. CEFTRIAXONE [Suspect]
     Route: 042
     Dates: start: 20110216, end: 20110223
  5. FLUMIL [Concomitant]
     Route: 048
     Dates: start: 20110216
  6. CLARITHROMYCIN [Suspect]
     Route: 048
     Dates: start: 20110216, end: 20110223

REACTIONS (1)
  - HEPATITIS [None]
